FAERS Safety Report 19801367 (Version 2)
Quarter: 2021Q4

REPORT INFORMATION
  Report Type: Spontaneous
  Country: JP (occurrence: JP)
  Receive Date: 20210907
  Receipt Date: 20211224
  Transmission Date: 20220304
  Serious: Yes (Death, Hospitalization, Other)
  Sender: FDA-Public Use
  Company Number: JP-GILEAD-2021-0546992

PATIENT
  Age: 76 Year
  Sex: Male
  Weight: 43.4 kg

DRUGS (9)
  1. VEKLURY [Suspect]
     Active Substance: REMDESIVIR
     Indication: COVID-19
     Dosage: 200 MG, QD
     Route: 065
     Dates: start: 20210828, end: 20210828
  2. VEKLURY [Suspect]
     Active Substance: REMDESIVIR
     Dosage: 100 MG, QD
     Route: 065
     Dates: start: 20210829, end: 20210831
  3. VEKLURY [Suspect]
     Active Substance: REMDESIVIR
     Dosage: 200 MG, QD
     Route: 041
     Dates: start: 20210901, end: 20210901
  4. HEPARIN CALCIUM [Concomitant]
     Active Substance: HEPARIN CALCIUM
     Dosage: 5000 UNITS, BID
     Route: 058
     Dates: start: 20210901, end: 20210901
  5. KCL CORRECTIVE [Concomitant]
     Dosage: 10MEQ, QD
     Route: 041
     Dates: start: 20210901, end: 20210902
  6. NOVOLIN R [Concomitant]
     Active Substance: INSULIN HUMAN
     Dosage: 10 UNITS, QD
     Route: 041
     Dates: start: 20210901, end: 20210902
  7. NOVOLIN R [Concomitant]
     Active Substance: INSULIN HUMAN
     Dosage: 50 UNITS, QD
     Route: 041
  8. DECADRON [Concomitant]
     Active Substance: DEXAMETHASONE
     Dosage: 6.6 MG, QD
     Route: 041
     Dates: start: 20210902, end: 20210902
  9. DEXTROSE [Concomitant]
     Active Substance: DEXTROSE
     Dosage: 100ML, QD
     Route: 041
     Dates: start: 20210902, end: 20210902

REACTIONS (2)
  - COVID-19 [Fatal]
  - Diabetic ketoacidosis [Fatal]
